FAERS Safety Report 12018058 (Version 1)
Quarter: 2016Q1

REPORT INFORMATION
  Report Type: Report from Study
  Country: US (occurrence: US)
  Receive Date: 20160205
  Receipt Date: 20160205
  Transmission Date: 20160526
  Serious: No
  Sender: FDA-Public Use
  Company Number: US-ABBVIE-15K-163-1454672-00

PATIENT
  Age: 18 Year

DRUGS (2)
  1. HUMIRA [Suspect]
     Active Substance: ADALIMUMAB
     Route: 058
     Dates: start: 201411
  2. HUMIRA [Suspect]
     Active Substance: ADALIMUMAB
     Indication: PRODUCT USED FOR UNKNOWN INDICATION
     Route: 058
     Dates: start: 201410, end: 201411

REACTIONS (4)
  - Joint stiffness [Unknown]
  - Wisdom teeth removal [Unknown]
  - Joint swelling [Unknown]
  - Anxiety [Unknown]

NARRATIVE: CASE EVENT DATE: 201501
